FAERS Safety Report 5615222-1 (Version None)
Quarter: 2008Q1

REPORT INFORMATION
  Report Type: 
  Country: None (occurrence: None)
  Receive Date: 20080205
  Receipt Date: 20080205
  Transmission Date: 20080703
  Serious: Yes (Other)
  Sender: FDA-Public Use
  Company Number: None

PATIENT
  Age: 44 Year
  Sex: Male

DRUGS (10)
  1. CHANTIX [Suspect]
     Indication: SMOKING CESSATION THERAPY
     Dosage: 0.5 MG AND 1 MG BID PO
     Route: 048
     Dates: start: 20080104, end: 20080131
  2. . [Concomitant]
  3. PROTONIX [Concomitant]
  4. LAMISIL [Concomitant]
  5. TRUVADA [Concomitant]
  6. VIRACEPT [Concomitant]
  7. LISINOPRIL [Concomitant]
  8. SEROQUEL [Concomitant]
  9. AMBIEN [Concomitant]
  10. LEVOTHYROXINE SODIUM [Concomitant]

REACTIONS (5)
  - AMNESIA [None]
  - ANXIETY [None]
  - DEPRESSION [None]
  - DISORIENTATION [None]
  - SUICIDAL IDEATION [None]
